FAERS Safety Report 5696281-7 (Version None)
Quarter: 2008Q2

REPORT INFORMATION
  Report Type: 
  Country: None (occurrence: None)
  Receive Date: 20080407
  Receipt Date: 20080325
  Transmission Date: 20081010
  Serious: Yes (Hospitalization)
  Sender: FDA-Public Use
  Company Number: US-ELI_LILLY_AND_COMPANY-US200803005641

PATIENT
  Sex: Female

DRUGS (4)
  1. FORTEO [Suspect]
     Indication: OSTEOPOROSIS
     Dates: start: 20060201, end: 20071201
  2. ANAPRIL [Concomitant]
  3. CALTRATE +D [Concomitant]
  4. LOVASTATIN [Concomitant]

REACTIONS (2)
  - DIZZINESS [None]
  - INTESTINAL HAEMORRHAGE [None]
